FAERS Safety Report 6472916-6 (Version None)
Quarter: 2009Q4

REPORT INFORMATION
  Report Type: 
  Country: None (occurrence: None)
  Receive Date: 20091203
  Receipt Date: 20081221
  Transmission Date: 20100525
  Serious: No
  Sender: FDA-Public Use
  Company Number: US-AMGEN-KDL324969

PATIENT
  Sex: Male

DRUGS (1)
  1. ENBREL [Suspect]
     Indication: PSORIATIC ARTHROPATHY
     Route: 058
     Dates: start: 20080829

REACTIONS (4)
  - ABNORMAL SENSATION IN EYE [None]
  - EYE PAIN [None]
  - NASOPHARYNGITIS [None]
  - TINNITUS [None]
